FAERS Safety Report 23871961 (Version 1)
Quarter: 2024Q2

REPORT INFORMATION
  Report Type: Spontaneous
  Country: US (occurrence: US)
  Receive Date: 20240520
  Receipt Date: 20240520
  Transmission Date: 20240717
  Serious: Yes (Other)
  Sender: FDA-Public Use
  Company Number: US-PROCTER_AND_GAMBLE-PH24001112

PATIENT
  Sex: Female

DRUGS (4)
  1. VICKS VAPORUB [Suspect]
     Active Substance: CAMPHOR (SYNTHETIC)\EUCALYPTUS OIL\MENTHOL
     Indication: Insomnia
     Dosage: USED LITTLE BIT, PUTTING INSIDE NOSTRILS, 3 TIMES A WEEK, AT NIGHT, STARTED 53-54 YEARS AGO
     Route: 045
  2. VICKS VAPORUB [Suspect]
     Active Substance: CAMPHOR (SYNTHETIC)\EUCALYPTUS OIL\MENTHOL
     Dosage: USE IT IN HUMIDIFIER
     Route: 055
  3. VASELINE PURE [Suspect]
     Active Substance: PETROLATUM
     Indication: Rhinorrhoea
     Dosage: A LITTLE
  4. VASELINE PURE [Suspect]
     Active Substance: PETROLATUM
     Indication: Pruritus

REACTIONS (5)
  - Atypical mycobacterial infection [Unknown]
  - Drug effective for unapproved indication [Unknown]
  - Wrong technique in product usage process [Unknown]
  - Incorrect route of product administration [Unknown]
  - Exposure via inhalation [Unknown]
